FAERS Safety Report 13067738 (Version 2)
Quarter: 2017Q1

REPORT INFORMATION
  Report Type: Spontaneous
  Country: PK (occurrence: PK)
  Receive Date: 20161228
  Receipt Date: 20170102
  Transmission Date: 20170428
  Serious: Yes (Disabling)
  Sender: FDA-Public Use
  Company Number: PK-ROCHE-1872830

PATIENT
  Age: 30 Year
  Sex: Female

DRUGS (1)
  1. BONVIVA [Suspect]
     Active Substance: IBANDRONATE SODIUM
     Indication: FRACTURE
     Dosage: 3MG/3ML
     Route: 042

REACTIONS (4)
  - Headache [Not Recovered/Not Resolved]
  - Herpes zoster [Not Recovered/Not Resolved]
  - Rash erythematous [Not Recovered/Not Resolved]
  - Eye inflammation [Not Recovered/Not Resolved]
